FAERS Safety Report 4360762-9 (Version None)
Quarter: 2004Q2

REPORT INFORMATION
  Report Type: 
  Country: None (occurrence: None)
  Receive Date: 20040519
  Receipt Date: 20040513
  Transmission Date: 20050107
  Serious: Yes (Other)
  Sender: FDA-Public Use
  Company Number: 7965

PATIENT
  Age: 57 Year
  Sex: Male

DRUGS (5)
  1. PACLITAXEL [Suspect]
     Indication: KAPOSI'S SARCOMA
     Dosage: 100 MG/M2 PER_CYCLE IV
     Route: 042
  2. INDINAVIR [Suspect]
     Indication: HIV INFECTION
     Dosage: 800 MG BID
  3. STAVUDINE [Suspect]
     Indication: HIV INFECTION
     Dosage: 40 MG BID
  4. LAMIVUDINE [Suspect]
     Indication: HIV INFECTION
     Dosage: 150 MG BID
  5. RITONAVIR [Suspect]
     Indication: HIV INFECTION
     Dosage: 200 MG BID

REACTIONS (6)
  - ALOPECIA TOTALIS [None]
  - BLOOD CULTURE POSITIVE [None]
  - PLATELET COUNT DECREASED [None]
  - PYREXIA [None]
  - STAPHYLOCOCCAL INFECTION [None]
  - WHITE BLOOD CELL COUNT DECREASED [None]
